FAERS Safety Report 25648050 (Version 1)
Quarter: 2025Q3

REPORT INFORMATION
  Report Type: Spontaneous
  Country: US (occurrence: US)
  Receive Date: 20250806
  Receipt Date: 20250806
  Transmission Date: 20251020
  Serious: No
  Sender: ROCHE
  Company Number: US-ROCHE-10000346238

PATIENT
  Age: 80 Year
  Sex: Male
  Weight: 75.75 kg

DRUGS (8)
  1. RITUXIMAB [Suspect]
     Active Substance: RITUXIMAB
     Indication: Pemphigoid
     Dosage: GETS  2 INFUSIONS 14 DAYS APART EVERY 6 MONTHS.
     Route: 042
     Dates: start: 20250609
  2. FOLIC ACID [Concomitant]
     Active Substance: FOLIC ACID
     Dosage: STARTED ABOUT 4 MONTHS AGO.
     Route: 048
     Dates: start: 2025
  3. CALCIUM [Concomitant]
     Active Substance: CALCIUM
     Dosage: STARTED ABOUT 4 MONTHS AGO.
     Route: 048
     Dates: start: 2025
  4. VITAMIN C [Concomitant]
     Active Substance: ASCORBIC ACID
     Dosage: STARTED ABOUT 4 MONTHS AGO.
     Route: 048
     Dates: start: 2025
  5. ROSUVASTATIN [Concomitant]
     Active Substance: ROSUVASTATIN
     Dosage: STARTED 2 YEARS AGO.
     Route: 048
  6. ADVIL [Concomitant]
     Active Substance: IBUPROFEN
     Indication: Pain
     Dosage: TAKES AS NEEDED FOR PAIN.
     Route: 048
     Dates: start: 202506
  7. ACETAMINOPHEN [Concomitant]
     Active Substance: ACETAMINOPHEN
     Indication: Pain
     Dosage: TAKES AS NEEDED FOR PAIN.
     Route: 048
     Dates: start: 202506
  8. BIVIGAM [Concomitant]
     Active Substance: HUMAN IMMUNOGLOBULIN G
     Indication: Autoimmune eye disorder
     Dosage: STARTED
     Route: 042

REACTIONS (7)
  - Peripheral swelling [Recovering/Resolving]
  - Off label use [Unknown]
  - Skin discolouration [Unknown]
  - Joint swelling [Recovering/Resolving]
  - Abdominal distension [Recovering/Resolving]
  - Weight increased [Recovering/Resolving]
  - Eyelid pain [Recovering/Resolving]

NARRATIVE: CASE EVENT DATE: 20250609
